FAERS Safety Report 13573332 (Version 1)
Quarter: 2017Q2

REPORT INFORMATION
  Report Type: Report from Study
  Country: US (occurrence: US)
  Receive Date: 20170523
  Receipt Date: 20170523
  Transmission Date: 20170830
  Serious: Yes (Hospitalization)
  Sender: FDA-Public Use
  Company Number: US-EISAI MEDICAL RESEARCH-EC-2015-008549

PATIENT
  Sex: Female

DRUGS (3)
  1. LENVIMA [Suspect]
     Active Substance: LENVATINIB
     Indication: THYROID CANCER
     Route: 048
     Dates: start: 20150618, end: 2015
  2. LENVIMA [Suspect]
     Active Substance: LENVATINIB
     Route: 048
     Dates: start: 20150722, end: 20160214
  3. LENVIMA [Suspect]
     Active Substance: LENVATINIB
     Dosage: 10 MG MONDAY TO FRIDAY; WEEKENDS OFF MEDICATION
     Route: 048
     Dates: start: 20160215, end: 201705

REACTIONS (14)
  - Renal impairment [Unknown]
  - Rash pruritic [Unknown]
  - Abdominal pain [Unknown]
  - Fatigue [Unknown]
  - Weight decreased [Unknown]
  - Nausea [Recovered/Resolved]
  - Dysphonia [Not Recovered/Not Resolved]
  - Decreased appetite [Unknown]
  - Blood pressure increased [Not Recovered/Not Resolved]
  - Diarrhoea [Not Recovered/Not Resolved]
  - Dehydration [Not Recovered/Not Resolved]
  - Exfoliative rash [Unknown]
  - Neck pain [Not Recovered/Not Resolved]
  - Influenza [Not Recovered/Not Resolved]

NARRATIVE: CASE EVENT DATE: 2015
